FAERS Safety Report 9350923 (Version 1)
Quarter: 2013Q2

REPORT INFORMATION
  Report Type: Spontaneous
  Country: CN (occurrence: CN)
  Receive Date: 20130617
  Receipt Date: 20130617
  Transmission Date: 20140414
  Serious: Yes (Hospitalization)
  Sender: FDA-Public Use
  Company Number: CN-JNJFOC-20130602730

PATIENT
  Age: 26 Year
  Sex: Female
  Weight: 45 kg

DRUGS (3)
  1. TYLENOL COLD [Suspect]
     Indication: HEADACHE
     Route: 048
     Dates: start: 20111217, end: 20111217
  2. TYLENOL COLD [Suspect]
     Indication: NASOPHARYNGITIS
     Route: 048
     Dates: start: 20111217, end: 20111217
  3. PSEUDOEPHEDRINE HYDROCHLORIDE [Suspect]
     Indication: PRODUCT USED FOR UNKNOWN INDICATION
     Route: 048
     Dates: start: 20111217, end: 20111217

REACTIONS (3)
  - Toxic skin eruption [Unknown]
  - Feeling cold [Unknown]
  - Pyrexia [Unknown]
